FAERS Safety Report 6864389-6 (Version None)
Quarter: 2010Q3

REPORT INFORMATION
  Report Type: 
  Country: None (occurrence: None)
  Receive Date: 20100721
  Receipt Date: 20080516
  Transmission Date: 20110219
  Serious: No
  Sender: FDA-Public Use
  Company Number: US-PFIZER INC-2008026162

PATIENT
  Sex: Female
  Weight: 65.9 kg

DRUGS (3)
  1. CHANTIX [Suspect]
     Indication: SMOKING CESSATION THERAPY
     Route: 048
     Dates: start: 20080317
  2. ZOCOR [Concomitant]
     Route: 048
     Dates: start: 20080101
  3. NEXIUM [Concomitant]
     Route: 048

REACTIONS (4)
  - FATIGUE [None]
  - HEADACHE [None]
  - HOT FLUSH [None]
  - SOMNOLENCE [None]
